FAERS Safety Report 16391432 (Version 2)
Quarter: 2019Q2

REPORT INFORMATION
  Report Type: Report from Study
  Country: US (occurrence: US)
  Receive Date: 20190604
  Receipt Date: 20190606
  Transmission Date: 20190711
  Serious: No
  Sender: FDA-Public Use
  Company Number: US-AMGEN-USASP2019088386

PATIENT
  Sex: Female

DRUGS (1)
  1. ENBREL [Suspect]
     Active Substance: ETANERCEPT
     Indication: RHEUMATOID ARTHRITIS
     Dosage: 50 MILLIGRAM, QWK
     Route: 065

REACTIONS (5)
  - Headache [Not Recovered/Not Resolved]
  - Injection site pain [Unknown]
  - Adverse drug reaction [Unknown]
  - Diarrhoea [Not Recovered/Not Resolved]
  - Injection site rash [Not Recovered/Not Resolved]

NARRATIVE: CASE EVENT DATE: 2019
